FAERS Safety Report 7601690-2 (Version None)
Quarter: 2011Q2

REPORT INFORMATION
  Report Type: 
  Country: None (occurrence: None)
  Receive Date: 20110630
  Receipt Date: 20110616
  Transmission Date: 20111010
  Serious: Yes (Hospitalization, Other)
  Sender: FDA-Public Use
  Company Number: 2010P1002570

PATIENT
  Age: 61 Year
  Sex: Female
  Weight: 65.7716 kg

DRUGS (37)
  1. PHENAZOPYRIDINE HCL TAB [Concomitant]
  2. VITAMIN B-12 [Concomitant]
  3. SKELAXIN [Concomitant]
  4. PROMETHAZINE [Concomitant]
  5. ZOFRAN [Concomitant]
  6. LACTULOSE [Concomitant]
  7. AMBIEN [Concomitant]
  8. FENTANYL-25 [Suspect]
     Indication: BACK PAIN
     Dosage: 1-2 PATCHES;Q72H;TDER
     Route: 062
     Dates: start: 20100101
  9. AMBIEN CR [Suspect]
  10. PRISTIQ [Concomitant]
  11. IBUPROFEN [Concomitant]
  12. FLEXERIL [Concomitant]
  13. PROZAC [Concomitant]
  14. LORTAB [Concomitant]
  15. ABILIFY [Concomitant]
  16. LEXISCAN [Suspect]
     Dates: start: 20100701, end: 20100701
  17. FOSAMAX PLUS D [Concomitant]
  18. OPANA [Suspect]
     Dates: end: 20100201
  19. TORADOL [Suspect]
     Dosage: PRN
     Dates: start: 20100707, end: 20100710
  20. TORADOL [Suspect]
     Dosage: PRN
     Dates: start: 20100710
  21. LORTAB [Suspect]
     Dates: end: 20110501
  22. ROBAXIN [Concomitant]
  23. VITAMIN B6/FOLIC ACID [Concomitant]
  24. LYRICA [Concomitant]
  25. AVELOX [Concomitant]
  26. FENTANYL [Suspect]
     Indication: BACK PAIN
     Dosage: 25 - 50 MCG/HR;Q72H;TDER ; TDER
     Route: 062
     Dates: start: 20100101, end: 20101001
  27. FENTANYL [Suspect]
     Indication: BACK PAIN
     Dosage: 25 - 50 MCG/HR;Q72H;TDER ; TDER
     Route: 062
     Dates: start: 20110519
  28. MYOVIEW [Suspect]
     Dates: start: 20100701, end: 20100701
  29. NUCYNTA [Concomitant]
  30. ESTRADIOL [Concomitant]
  31. NORFLEX [Concomitant]
  32. MIRALAX [Concomitant]
  33. WELLBUTRIN XL [Concomitant]
  34. FERROUS SULFATE TAB [Concomitant]
  35. TYLENOL-500 [Concomitant]
  36. NYSTATIN SWISH AND SWALLOW [Concomitant]
  37. COLACE [Concomitant]

REACTIONS (64)
  - PARAESTHESIA [None]
  - MIGRAINE [None]
  - CARDIAC MURMUR [None]
  - CONTUSION [None]
  - STRESS [None]
  - MITRAL VALVE CALCIFICATION [None]
  - VITAMIN D DEFICIENCY [None]
  - NEPHROSCLEROSIS [None]
  - RESPIRATORY RATE DECREASED [None]
  - PALPITATIONS [None]
  - ORAL DISCOMFORT [None]
  - OROPHARYNGEAL PAIN [None]
  - OEDEMA PERIPHERAL [None]
  - GASTROOESOPHAGEAL REFLUX DISEASE [None]
  - SKIN ULCER [None]
  - HEPATOTOXICITY [None]
  - BLOOD CALCIUM DECREASED [None]
  - FEELING ABNORMAL [None]
  - OVERDOSE [None]
  - DRUG WITHDRAWAL SYNDROME [None]
  - MYOCARDIAL INFARCTION [None]
  - RENAL IMPAIRMENT [None]
  - APPLICATION SITE RASH [None]
  - NAUSEA [None]
  - DIARRHOEA [None]
  - ATRIOVENTRICULAR BLOCK FIRST DEGREE [None]
  - BREAST PAIN [None]
  - VITAMIN B12 DEFICIENCY [None]
  - LOSS OF CONSCIOUSNESS [None]
  - NEPHROLITHIASIS [None]
  - INSOMNIA [None]
  - STAPHYLOCOCCAL INFECTION [None]
  - CHEST DISCOMFORT [None]
  - DEPRESSION [None]
  - HAEMATURIA [None]
  - WEIGHT INCREASED [None]
  - BLOOD GLUCOSE INCREASED [None]
  - HYPERTENSION [None]
  - MENISCUS LESION [None]
  - HEPATIC FAILURE [None]
  - HYPOKALAEMIA [None]
  - APPLICATION SITE PRURITUS [None]
  - CONSTIPATION [None]
  - DERMATITIS [None]
  - FATIGUE [None]
  - IRON DEFICIENCY ANAEMIA [None]
  - PAIN IN EXTREMITY [None]
  - DEVICE MALFUNCTION [None]
  - NECK PAIN [None]
  - DYSPEPSIA [None]
  - INFLUENZA LIKE ILLNESS [None]
  - MUSCLE SPASMS [None]
  - DRUG ABUSE [None]
  - PHOTOSENSITIVITY REACTION [None]
  - HAEMATOCHEZIA [None]
  - CHEST PAIN [None]
  - HYPERHIDROSIS [None]
  - ANAEMIA [None]
  - HYPERPARATHYROIDISM [None]
  - PRODUCT QUALITY ISSUE [None]
  - DYSURIA [None]
  - ARTHRALGIA [None]
  - SUICIDE ATTEMPT [None]
  - BLOOD ALBUMIN DECREASED [None]
